FAERS Safety Report 7508179-X (Version None)
Quarter: 2011Q2

REPORT INFORMATION
  Report Type: 
  Country: None (occurrence: None)
  Receive Date: 20110519
  Receipt Date: 20110505
  Transmission Date: 20111010
  Serious: Yes (Death, Hospitalization)
  Sender: FDA-Public Use
  Company Number: AE 2011-197

PATIENT
  Age: 82 Year
  Sex: Female

DRUGS (1)
  1. FAZACLO ODT [Suspect]
     Dosage: 50 MG DAILY PO
     Route: 048
     Dates: start: 20090309, end: 20110228

REACTIONS (1)
  - PNEUMONIA [None]
